FAERS Safety Report 24641975 (Version 1)
Quarter: 2024Q4

REPORT INFORMATION
  Report Type: Spontaneous
  Country: CA (occurrence: CA)
  Receive Date: 20241120
  Receipt Date: 20241120
  Transmission Date: 20250114
  Serious: Yes (Life-Threatening, Other)
  Sender: CSL BEHRING
  Company Number: CA-BEH-2024185390

PATIENT
  Age: 65 Year
  Sex: Male
  Weight: 106 kg

DRUGS (9)
  1. ALBUMIN HUMAN [Suspect]
     Active Substance: ALBUMIN HUMAN
     Dosage: 500 ML
     Route: 065
  2. CALCIUM CHLORIDE [Concomitant]
     Active Substance: CALCIUM CHLORIDE
  3. DOBUTAMINE [Concomitant]
     Active Substance: DOBUTAMINE HYDROCHLORIDE
  4. INSULIN NOS [Concomitant]
     Active Substance: INSULIN NOS
  5. KETAMINE [Concomitant]
     Active Substance: KETAMINE
  6. MILRINONE [Concomitant]
     Active Substance: MILRINONE
  7. NOREPINEPHRINE [Concomitant]
     Active Substance: NOREPINEPHRINE\NOREPINEPHRINE BITARTRATE
  8. PROPOFOL [Concomitant]
     Active Substance: PROPOFOL
  9. SUFENTANIL CITRATE [Concomitant]
     Active Substance: SUFENTANIL CITRATE

REACTIONS (6)
  - Anaphylactic reaction [Recovered/Resolved]
  - Bronchospasm [Recovered/Resolved]
  - Hypotension [Recovered/Resolved]
  - Oxygen saturation decreased [Recovered/Resolved]
  - Periorbital oedema [Recovered/Resolved]
  - Rash [Recovered/Resolved]
